FAERS Safety Report 7931025-7 (Version None)
Quarter: 2011Q4

REPORT INFORMATION
  Report Type: 
  Country: None (occurrence: None)
  Receive Date: 20111121
  Receipt Date: 20111114
  Transmission Date: 20120403
  Serious: Yes (Hospitalization)
  Sender: FDA-Public Use
  Company Number: PHHY2011ES101495

PATIENT
  Age: 42 Year
  Sex: Male

DRUGS (1)
  1. ALLOPURINOL [Suspect]
     Indication: HYPERURICAEMIA
     Dosage: UNK UKN, UNK

REACTIONS (10)
  - RENAL FAILURE [None]
  - CORNEAL LESION [None]
  - HYPOTENSION [None]
  - INTERSTITIAL LUNG DISEASE [None]
  - ERYTHEMA [None]
  - SKIN LESION [None]
  - TACHYCARDIA [None]
  - TOXIC EPIDERMAL NECROLYSIS [None]
  - RASH [None]
  - ORAL DISORDER [None]
